FAERS Safety Report 13819125 (Version 2)
Quarter: 2018Q1

REPORT INFORMATION
  Report Type: Report from Study
  Country: US (occurrence: US)
  Receive Date: 20170731
  Receipt Date: 20180201
  Transmission Date: 20180508
  Serious: No
  Sender: FDA-Public Use
  Company Number: US-EXELIXIS-CABO-17008411

PATIENT
  Sex: Male
  Weight: 102.4 kg

DRUGS (8)
  1. CABOMETYX [Suspect]
     Active Substance: CABOZANTINIB S-MALATE
     Indication: RENAL CANCER
     Dosage: 60 MG, QD
     Route: 048
     Dates: start: 201701
  2. MVI [Concomitant]
     Active Substance: VITAMINS
  3. CELEXA [Concomitant]
     Active Substance: CITALOPRAM HYDROBROMIDE
  4. COUMADIN [Concomitant]
     Active Substance: WARFARIN SODIUM
  5. SUTENT [Concomitant]
     Active Substance: SUNITINIB MALATE
  6. FISH OIL [Concomitant]
     Active Substance: FISH OIL
  7. TRICOR [Concomitant]
     Active Substance: FENOFIBRATE
  8. ATENOLOL. [Concomitant]
     Active Substance: ATENOLOL

REACTIONS (2)
  - Oropharyngeal pain [Unknown]
  - Dysphagia [Unknown]
